FAERS Safety Report 24299775 (Version 1)
Quarter: 2024Q3

REPORT INFORMATION
  Report Type: Spontaneous
  Country: US (occurrence: None)
  Receive Date: 20240909
  Receipt Date: 20240909
  Transmission Date: 20241017
  Serious: Yes (Death, Life-Threatening, Other)
  Sender: Public
  Company Number: None

PATIENT
  Age: 69 Year
  Sex: Male
  Weight: 77.1 kg

DRUGS (2)
  1. ANDEXXA [Suspect]
     Active Substance: ANDEXANET ALFA
     Indication: Haemorrhage
     Dosage: 880 MG ONCE INTRAVENOUS ?
     Route: 042
     Dates: start: 20240907, end: 20240907
  2. ANDEXXA [Suspect]
     Active Substance: ANDEXANET ALFA
     Indication: Procoagulant therapy

REACTIONS (9)
  - Platelet transfusion [None]
  - Chest pain [None]
  - Troponin increased [None]
  - Electrocardiogram ST segment elevation [None]
  - Electrocardiogram Q waves [None]
  - Subdural haematoma [None]
  - Condition aggravated [None]
  - Mental status changes [None]
  - Cardiac arrest [None]

NARRATIVE: CASE EVENT DATE: 20240907
